FAERS Safety Report 4768678-0 (Version None)
Quarter: 2005Q3

REPORT INFORMATION
  Report Type: 
  Country: None (occurrence: None)
  Receive Date: 20050913
  Receipt Date: 20050902
  Transmission Date: 20060218
  Serious: Yes (Death)
  Sender: FDA-Public Use
  Company Number: 2005124853

PATIENT
  Sex: Male

DRUGS (2)
  1. ZOLOFT [Suspect]
     Indication: DEPRESSION
  2. XANAX [Suspect]
     Indication: DEPRESSION

REACTIONS (3)
  - ALCOHOLISM [None]
  - COMPLETED SUICIDE [None]
  - THERMAL BURN [None]
